FAERS Safety Report 5052608-0 (Version None)
Quarter: 2006Q3

REPORT INFORMATION
  Report Type: 
  Country: None (occurrence: None)
  Receive Date: 20060717
  Receipt Date: 20060707
  Transmission Date: 20061208
  Serious: Yes (Hospitalization)
  Sender: FDA-Public Use
  Company Number: 453721

PATIENT
  Age: 65 Year
  Sex: Male

DRUGS (2)
  1. CARVEDILOL [Suspect]
     Indication: CONGESTIVE CARDIOMYOPATHY
     Dosage: 1.25MG TWICE PER DAY
     Route: 048
     Dates: start: 20040805, end: 20050420
  2. ALDACTONE [Concomitant]
     Dates: start: 20040810, end: 20050426

REACTIONS (1)
  - CARDIAC FAILURE [None]
